FAERS Safety Report 18817653 (Version 4)
Quarter: 2021Q2

REPORT INFORMATION
  Report Type: Spontaneous
  Country: AT (occurrence: AT)
  Receive Date: 20210201
  Receipt Date: 20210427
  Transmission Date: 20210717
  Serious: Yes (Other)
  Sender: FDA-Public Use
  Company Number: AT-PFIZER INC-2021068038

PATIENT
  Age: 86 Year
  Sex: Female

DRUGS (11)
  1. BURONIL [Suspect]
     Active Substance: MELPERONE HYDROCHLORIDE
     Dosage: 100 MG, 1X/DAY
     Route: 065
  2. NEBIVOLOL GENERICON [Suspect]
     Active Substance: NEBIVOLOL
     Dosage: 2.5 MG, 1X/DAY
     Route: 065
  3. TEMESTA [LORAZEPAM] [Suspect]
     Active Substance: LORAZEPAM
     Dosage: 2.5 MG, 1X/DAY
     Route: 065
  4. ZYRTEC [Suspect]
     Active Substance: CETIRIZINE HYDROCHLORIDE
     Dosage: 2 DF, 1X/DAY (QD)
     Route: 065
  5. LASIX [Suspect]
     Active Substance: FUROSEMIDE
     Dosage: 20 MG, 2X/DAY
  6. SERTRALIN ACCORD [Suspect]
     Active Substance: SERTRALINE HYDROCHLORIDE
     Dosage: 50 MG, 1X/DAY
     Route: 065
  7. DEPAKINE CHRONO SR [VALPROATE SODIUM/VALPROIC ACID] [Suspect]
     Active Substance: VALPROATE SODIUM
     Dosage: 500 MG, 1X/DAY (MODIFIED?RELEASE FILM?COATED TABLET)
     Route: 065
  8. PANTOLOC [Suspect]
     Active Substance: PANTOPRAZOLE SODIUM
     Dosage: 40 MG, 1X/DAY (GASTRO?RESISTANT TABLET)
     Route: 065
  9. OLANZAPINE + PHARMA [Suspect]
     Active Substance: OLANZAPINE
     Dosage: 7.5 MG, 2X/DAY
  10. TRAMAL [Suspect]
     Active Substance: TRAMADOL
     Dosage: UNK, AS NEEDED (3 X DAILY AS NEEDED)
  11. INKONTAN [Suspect]
     Active Substance: TROSPIUM CHLORIDE
     Dosage: 45 MG, DAILY

REACTIONS (8)
  - Restlessness [Unknown]
  - Dry mouth [Unknown]
  - Dizziness [Unknown]
  - Delirium [Unknown]
  - Disorientation [Unknown]
  - Vertigo [Unknown]
  - Condition aggravated [Unknown]
  - Eye pruritus [Unknown]
